FAERS Safety Report 22008619 (Version 1)
Quarter: 2023Q1

REPORT INFORMATION
  Report Type: Spontaneous
  Country: GR (occurrence: GR)
  Receive Date: 20230219
  Receipt Date: 20230219
  Transmission Date: 20230418
  Serious: Yes (Other)
  Sender: FDA-Public Use
  Company Number: GR-GLAXOSMITHKLINE-GR2021EME204046

PATIENT
  Age: 79 Year
  Sex: Male

DRUGS (2)
  1. DUTASTERIDE [Suspect]
     Active Substance: DUTASTERIDE
     Indication: Benign prostatic hyperplasia
     Dosage: 0.5 MG, QD
     Route: 065
     Dates: start: 2021, end: 20210923
  2. SOLIFENACIN\TAMSULOSIN [Suspect]
     Active Substance: SOLIFENACIN\TAMSULOSIN
     Indication: Benign prostatic hyperplasia
     Dosage: UNK, QD, 1 AT NOON
     Dates: start: 2021

REACTIONS (6)
  - Erectile dysfunction [Not Recovered/Not Resolved]
  - Breast pain [Recovering/Resolving]
  - Breast induration [Recovering/Resolving]
  - Breast mass [Recovering/Resolving]
  - Breast discomfort [Recovering/Resolving]
  - Condition aggravated [Unknown]

NARRATIVE: CASE EVENT DATE: 20210101
